FAERS Safety Report 9234848 (Version 1)
Quarter: 2013Q2

REPORT INFORMATION
  Report Type: Spontaneous
  Country: US (occurrence: US)
  Receive Date: 20130416
  Receipt Date: 20130416
  Transmission Date: 20140414
  Serious: Yes (Hospitalization)
  Sender: FDA-Public Use
  Company Number: US-BAXTER-2013BAX007248

PATIENT
  Age: 81 Year
  Sex: Male

DRUGS (1)
  1. DIANEAL LOW CALCIUM [Suspect]
     Indication: RENAL FAILURE CHRONIC
     Route: 033
     Dates: start: 201206

REACTIONS (4)
  - Cardiac failure [Recovered/Resolved]
  - Choking [Recovered/Resolved]
  - Cough [Recovered/Resolved]
  - Ultrafiltration failure [Unknown]
